FAERS Safety Report 11934758 (Version 1)
Quarter: 2016Q1

REPORT INFORMATION
  Report Type: Report from Study
  Country: CO (occurrence: CO)
  Receive Date: 20160121
  Receipt Date: 20160121
  Transmission Date: 20160526
  Serious: Yes (Hospitalization, Other)
  Sender: FDA-Public Use
  Company Number: CO-JNJFOC-20160114468

PATIENT
  Age: 28 Year
  Sex: Male

DRUGS (1)
  1. RISPERDAL CONSTA [Suspect]
     Active Substance: RISPERIDONE
     Indication: BIPOLAR DISORDER
     Route: 030
     Dates: start: 20160106

REACTIONS (2)
  - Aggression [Not Recovered/Not Resolved]
  - Homicidal ideation [Not Recovered/Not Resolved]

NARRATIVE: CASE EVENT DATE: 20160117
